FAERS Safety Report 8909771 (Version 1)
Quarter: 2012Q4

REPORT INFORMATION
  Report Type: 
  Country: US (occurrence: US)
  Receive Date: 20121115
  Receipt Date: 20121115
  Transmission Date: 20130627
  Serious: Yes (Other)
  Sender: FDA-Public Use
  Company Number: US-PFIZER INC-2012285568

PATIENT
  Sex: Female

DRUGS (2)
  1. ZOLOFT [Suspect]
     Dosage: 50 mg, UNK
     Dates: start: 2012
  2. PRISTIQ [Suspect]
     Dosage: UNK

REACTIONS (5)
  - Confusional state [Unknown]
  - Disorientation [Unknown]
  - Insomnia [Unknown]
  - Nausea [Unknown]
  - Burning sensation [Unknown]
